FAERS Safety Report 25120185 (Version 1)
Quarter: 2025Q1

REPORT INFORMATION
  Report Type: Spontaneous
  Country: FR (occurrence: FR)
  Receive Date: 20250325
  Receipt Date: 20250325
  Transmission Date: 20250409
  Serious: Yes (Other)
  Sender: MYLAN
  Company Number: None

PATIENT
  Age: 43 Year
  Sex: Male

DRUGS (4)
  1. LYRICA [Suspect]
     Active Substance: PREGABALIN
     Indication: Product used for unknown indication
     Dosage: 900 MILLIGRAM, QD (900 MG/D)
     Dates: start: 20250301
  2. LYRICA [Suspect]
     Active Substance: PREGABALIN
     Dosage: 900 MILLIGRAM, QD (900 MG/D)
     Route: 048
     Dates: start: 20250301
  3. LYRICA [Suspect]
     Active Substance: PREGABALIN
     Dosage: 900 MILLIGRAM, QD (900 MG/D)
     Route: 048
     Dates: start: 20250301
  4. LYRICA [Suspect]
     Active Substance: PREGABALIN
     Dosage: 900 MILLIGRAM, QD (900 MG/D)
     Dates: start: 20250301

REACTIONS (1)
  - Drug use disorder [Not Recovered/Not Resolved]
